FAERS Safety Report 7946853-1 (Version None)
Quarter: 2011Q4

REPORT INFORMATION
  Report Type: 
  Country: None (occurrence: None)
  Receive Date: 20111129
  Receipt Date: 20111117
  Transmission Date: 20120403
  Serious: Yes (Hospitalization, Other)
  Sender: FDA-Public Use
  Company Number: PHHY2011BR101342

PATIENT

DRUGS (10)
  1. LEXAPRO [Concomitant]
     Indication: DEPRESSION
     Dosage: HALF A TABLET IN THE MORNING AND HALF A TABLET AT NIGHT
     Route: 048
  2. EPHYNAL [Concomitant]
     Dosage: 2 TABLETS DAILY
     Route: 048
  3. EXELON [Suspect]
     Indication: MEMORY IMPAIRMENT
     Dosage: 9MG/5CM2 , 1 PATCH DAILY
     Route: 062
     Dates: start: 20110301
  4. EXELON [Suspect]
     Dosage: 18MG/10CM2 1 PATCH DAILY
     Route: 062
     Dates: start: 20110901
  5. ATENOLOL [Concomitant]
     Indication: HYPERTENSION
     Dosage: HALF A TABLET DAILY
     Route: 048
  6. ATENOLOL [Concomitant]
     Indication: ARRHYTHMIA
  7. MEMANTINE HYDROCHLORIDE [Concomitant]
     Indication: MEMORY IMPAIRMENT
     Dosage: 10 MG, BID
  8. WARFARIN SODIUM [Concomitant]
     Indication: CARDIAC DISORDER
     Dosage: 1 TABLET DAILY AND HALF A TABLET DAILY
     Route: 048
  9. METFORMIN HCL [Concomitant]
     Indication: TYPE 2 DIABETES MELLITUS
     Dosage: 1 TABLET AFTER THE LUNCH AND 1 AFTER THE DINNER
     Route: 048
  10. DIOVAN [Concomitant]
     Indication: HYPERTENSION
     Dosage: 2 DF, DAILY

REACTIONS (6)
  - BONE PAIN [None]
  - AMNESIA [None]
  - SENSORY LOSS [None]
  - FALL [None]
  - SPINAL FRACTURE [None]
  - HEAD INJURY [None]
